FAERS Safety Report 18821611 (Version 2)
Quarter: 2025Q4

REPORT INFORMATION
  Report Type: Spontaneous
  Country: EU (occurrence: EU)
  Receive Date: 20210202
  Receipt Date: 20251202
  Transmission Date: 20260118
  Serious: Yes (Congenital Anomaly, Other)
  Sender: MYLAN
  Company Number: None

PATIENT
  Age: 29 Week

DRUGS (8)
  1. METFORMIN HYDROCHLORIDE [Suspect]
     Active Substance: METFORMIN HYDROCHLORIDE
     Indication: Polycystic ovarian syndrome
     Dosage: 500 MILLIGRAM, TID, STRENGTH: 500 MG, 0.33 DAYS
     Dates: start: 20200408, end: 20200719
  2. METFORMIN HYDROCHLORIDE [Suspect]
     Active Substance: METFORMIN HYDROCHLORIDE
     Indication: Assisted fertilisation
     Dosage: 500 MILLIGRAM, TID, STRENGTH: 500 MG, 0.33 DAYS
     Dates: start: 20200408, end: 20200719
  3. METFORMIN HYDROCHLORIDE [Suspect]
     Active Substance: METFORMIN HYDROCHLORIDE
     Dosage: 500 MILLIGRAM, TID, STRENGTH: 500 MG, 0.33 DAYS
     Route: 064
     Dates: start: 20200408, end: 20200719
  4. METFORMIN HYDROCHLORIDE [Suspect]
     Active Substance: METFORMIN HYDROCHLORIDE
     Dosage: 500 MILLIGRAM, TID, STRENGTH: 500 MG, 0.33 DAYS
     Route: 064
     Dates: start: 20200408, end: 20200719
  5. METFORMIN HYDROCHLORIDE [Suspect]
     Active Substance: METFORMIN HYDROCHLORIDE
     Dosage: 500 MILLIGRAM, TID, STRENGTH: 500 MG, 0.33 DAYS
     Dates: start: 20200408, end: 20200719
  6. METFORMIN HYDROCHLORIDE [Suspect]
     Active Substance: METFORMIN HYDROCHLORIDE
     Dosage: 500 MILLIGRAM, TID, STRENGTH: 500 MG, 0.33 DAYS
     Dates: start: 20200408, end: 20200719
  7. METFORMIN HYDROCHLORIDE [Suspect]
     Active Substance: METFORMIN HYDROCHLORIDE
     Dosage: 500 MILLIGRAM, TID, STRENGTH: 500 MG, 0.33 DAYS
     Route: 064
     Dates: start: 20200408, end: 20200719
  8. METFORMIN HYDROCHLORIDE [Suspect]
     Active Substance: METFORMIN HYDROCHLORIDE
     Dosage: 500 MILLIGRAM, TID, STRENGTH: 500 MG, 0.33 DAYS
     Route: 064
     Dates: start: 20200408, end: 20200719

REACTIONS (2)
  - Congenital central nervous system anomaly [Not Recovered/Not Resolved]
  - Foetal exposure during pregnancy [Not Recovered/Not Resolved]
